FAERS Safety Report 5143031-9 (Version None)
Quarter: 2006Q4

REPORT INFORMATION
  Report Type: 
  Country: None (occurrence: None)
  Receive Date: 20061103
  Receipt Date: 20061012
  Transmission Date: 20070319
  Serious: Yes (Other)
  Sender: FDA-Public Use
  Company Number: AU-NOVOPROD-257741

PATIENT
  Age: 47 Year
  Sex: Male

DRUGS (6)
  1. DIAMICRON MR [Concomitant]
     Dosage: 30 MG, QID
     Route: 048
  2. DIAMICRON MR [Concomitant]
     Dosage: 30 MG, BID
  3. LIPITOR [Concomitant]
     Dosage: 20 MG, QD
     Route: 048
  4. WARFARIN SODIUM [Concomitant]
     Dosage: 8.5 MG, QD
     Route: 048
  5. NOVOLOG MIX 70/30 [Suspect]
     Indication: INSULIN-REQUIRING TYPE II DIABETES MELLITUS
     Dosage: 15 IU, UNK
  6. NOVOLOG MIX 70/30 [Suspect]
     Dosage: 20 IU, QD
     Dates: start: 20060816

REACTIONS (1)
  - HYPOGLYCAEMIC SEIZURE [None]
